FAERS Safety Report 4913783-9 (Version None)
Quarter: 2006Q1

REPORT INFORMATION
  Report Type: 
  Country: None (occurrence: None)
  Receive Date: 20060216
  Receipt Date: 20060207
  Transmission Date: 20060701
  Serious: Yes (Hospitalization)
  Sender: FDA-Public Use
  Company Number: FR-GLAXOSMITHKLINE-B0409383A

PATIENT
  Age: 82 Year
  Sex: Female

DRUGS (3)
  1. ALKERAN [Suspect]
     Dosage: 9UNIT PER DAY
     Route: 048
     Dates: start: 20051001, end: 20051103
  2. DEXAMETHASONE [Suspect]
     Dosage: 40MG PER DAY
     Route: 048
     Dates: start: 20051001, end: 20051103
  3. THALIDOMIDE [Suspect]
     Dosage: 100MG PER DAY
     Route: 048
     Dates: start: 20051031, end: 20060102

REACTIONS (10)
  - C-REACTIVE PROTEIN INCREASED [None]
  - DYSPNOEA [None]
  - FUNGAL INFECTION [None]
  - LEUKOPENIA [None]
  - LUNG DISORDER [None]
  - LYMPHOCYTE COUNT DECREASED [None]
  - ORAL FUNGAL INFECTION [None]
  - PNEUMOCYSTIS JIROVECI INFECTION [None]
  - PYREXIA [None]
  - RALES [None]
